FAERS Safety Report 8240120-7 (Version None)
Quarter: 2012Q1

REPORT INFORMATION
  Report Type: 
  Country: None (occurrence: None)
  Receive Date: 20120327
  Receipt Date: 20120327
  Transmission Date: 20120608
  Serious: Yes (Hospitalization)
  Sender: FDA-Public Use
  Company Number: None

PATIENT
  Age: 69 Year
  Sex: Female
  Weight: 54.4316 kg

DRUGS (1)
  1. TRETINOIN [Suspect]
     Indication: MILIA
     Dosage: DAB - SPREAD THIN LAYER 1 ON FACE
     Route: 061
     Dates: start: 20120201

REACTIONS (4)
  - NAUSEA [None]
  - LACERATION [None]
  - DIZZINESS [None]
  - FALL [None]
